FAERS Safety Report 7229384-6 (Version None)
Quarter: 2011Q1

REPORT INFORMATION
  Report Type: 
  Country: None (occurrence: None)
  Receive Date: 20110117
  Receipt Date: 20110103
  Transmission Date: 20110831
  Serious: Yes (Congenital Anomaly)
  Sender: FDA-Public Use
  Company Number: A0905945A

PATIENT
  Sex: Female

DRUGS (3)
  1. PAXIL [Suspect]
     Dates: start: 20030924
  2. PRENATAL VITAMINS [Concomitant]
  3. PROTONIX [Concomitant]

REACTIONS (4)
  - ARTERIAL DISORDER [None]
  - CONGENITAL ANOMALY [None]
  - CONGENITAL AORTIC ANOMALY [None]
  - DRUG EXPOSURE DURING PREGNANCY [None]
